FAERS Safety Report 5397140-X (Version None)
Quarter: 2007Q3

REPORT INFORMATION
  Report Type: 
  Country: None (occurrence: None)
  Receive Date: 20070725
  Receipt Date: 20070713
  Transmission Date: 20080115
  Serious: Yes (Disabling, Other)
  Sender: FDA-Public Use
  Company Number: JP-PFIZER INC-2007029186

PATIENT
  Sex: Female

DRUGS (4)
  1. ZOLOFT [Suspect]
     Indication: DEPRESSION
     Dosage: DAILY DOSE:25MG
     Route: 048
     Dates: start: 20061109, end: 20070331
  2. TOLEDOMIN [Concomitant]
     Route: 048
  3. LAXOSELIN [Concomitant]
     Route: 048
  4. SOLANAX [Concomitant]
     Route: 048

REACTIONS (8)
  - ASTHENOPIA [None]
  - AUTISM [None]
  - CONJUNCTIVAL HAEMORRHAGE [None]
  - INNER EAR DISORDER [None]
  - TINNITUS [None]
  - VISUAL ACUITY REDUCED [None]
  - VITREOUS DETACHMENT [None]
  - VITREOUS HAEMORRHAGE [None]
